FAERS Safety Report 23988540 (Version 1)
Quarter: 2024Q2

REPORT INFORMATION
  Report Type: Spontaneous
  Country: GB (occurrence: GB)
  Receive Date: 20240619
  Receipt Date: 20240619
  Transmission Date: 20240715
  Serious: Yes (Hospitalization)
  Sender: FDA-Public Use
  Company Number: None

PATIENT
  Age: 54 Year
  Sex: Female

DRUGS (4)
  1. PACLITAXEL [Suspect]
     Active Substance: PACLITAXEL
     Indication: Anal cancer
     Dosage: 109.2MG - IV INFUSION
     Route: 042
     Dates: start: 20200501
  2. CARBOPLATIN [Concomitant]
     Active Substance: CARBOPLATIN
  3. ONDANSETRON [Concomitant]
     Active Substance: ONDANSETRON
  4. METOCLOPRAMIDE [Concomitant]
     Active Substance: METOCLOPRAMIDE

REACTIONS (5)
  - Rash [Unknown]
  - Nervousness [Unknown]
  - Vomiting [Unknown]
  - Body temperature increased [Unknown]
  - Diarrhoea [Unknown]

NARRATIVE: CASE EVENT DATE: 20240610
